FAERS Safety Report 9690244 (Version 1)
Quarter: 2013Q4

REPORT INFORMATION
  Report Type: Spontaneous
  Country: US (occurrence: None)
  Receive Date: 20131114
  Receipt Date: 20131114
  Transmission Date: 20140711
  Serious: Yes (Other)
  Sender: FDA-Public Use
  Company Number: None

PATIENT
  Age: 35 Year
  Sex: Female
  Weight: 81.8 kg

DRUGS (2)
  1. LAMOTRIGINE [Suspect]
     Indication: CONVULSION
     Dosage: 200MG  2.5 TABS BID  PO
     Route: 048
     Dates: start: 20130717
  2. LAMOTRIGINE [Suspect]
     Dosage: 25 MG  3 TABS BID  PO
     Route: 048

REACTIONS (2)
  - Product substitution issue [None]
  - Unevaluable event [None]
